FAERS Safety Report 9473502 (Version 2)
Quarter: 2013Q3

REPORT INFORMATION
  Report Type: Spontaneous
  Country: US (occurrence: US)
  Receive Date: 20130823
  Receipt Date: 20130823
  Transmission Date: 20140515
  Serious: No
  Sender: FDA-Public Use
  Company Number: US-GALDERMA-US13000271

PATIENT
  Age: 50 Year
  Sex: Female

DRUGS (14)
  1. METROGEL (METRONIDAZOLE) GEL, 1% [Suspect]
     Indication: ROSACEA
     Dosage: 1%
     Route: 061
     Dates: start: 20130121, end: 20130122
  2. CETAPHIL GENTLE SKIN CLEANSER [Suspect]
     Indication: THERAPEUTIC SKIN CARE TOPICAL
     Route: 061
     Dates: start: 20130121
  3. OMEPRAZOLE [Concomitant]
     Indication: GASTRITIS
     Route: 048
  4. LIPITOR [Concomitant]
     Indication: HYPERCHOLESTEROLAEMIA
     Route: 048
  5. ATENOLOL [Concomitant]
     Indication: HYPERTENSION
     Route: 048
  6. CLINIQUE DRAMATICALLY DIFFERENT MOISTURIZING LOTION [Concomitant]
     Route: 061
  7. ASTEPRO [Concomitant]
     Indication: RHINITIS
     Dosage: 0.15%
     Route: 045
  8. SINGULAIR [Concomitant]
  9. ZYRTEC [Concomitant]
  10. CALCITRATE [Concomitant]
  11. REFRESH EYE DROPS [Concomitant]
  12. VITAMIN B [Concomitant]
  13. MEGA RED FISH OIL [Concomitant]
  14. MINOCYCLINE [Concomitant]
     Indication: ROSACEA

REACTIONS (8)
  - Hypersensitivity [Recovered/Resolved]
  - Rash papular [Recovered/Resolved]
  - Swelling face [Recovered/Resolved]
  - Erythema [Recovered/Resolved]
  - Pruritus [Recovered/Resolved]
  - Skin burning sensation [Recovered/Resolved]
  - Pain of skin [Recovered/Resolved]
  - Condition aggravated [Recovered/Resolved]
